FAERS Safety Report 6139167-6 (Version None)
Quarter: 2009Q2

REPORT INFORMATION
  Report Type: 
  Country: None (occurrence: None)
  Receive Date: 20090401
  Receipt Date: 20090319
  Transmission Date: 20091009
  Serious: Yes (Hospitalization, Disabling)
  Sender: FDA-Public Use
  Company Number: DE-PFIZER INC-2009179023

PATIENT

DRUGS (4)
  1. SOMATROPIN [Suspect]
     Indication: HYPOPITUITARISM
     Dosage: 0.2 MG, 1X/DAY
     Route: 058
     Dates: start: 20070706, end: 20090201
  2. EZETIMIBE/SIMVASTATIN [Concomitant]
     Dosage: UNK
     Route: 048
     Dates: start: 20071101
  3. MINRIN [Concomitant]
     Dosage: UNK
     Dates: start: 20060506
  4. TESTOSTERONE UNDECANOATE [Concomitant]
     Dosage: UNK
     Route: 030
     Dates: start: 20071101

REACTIONS (1)
  - LARYNGEAL CANCER [None]
